FAERS Safety Report 9746692 (Version 1)
Quarter: 2013Q4

REPORT INFORMATION
  Report Type: Other
  Country: ZA (occurrence: ZA)
  Receive Date: 20131211
  Receipt Date: 20131211
  Transmission Date: 20140711
  Serious: Yes (Hospitalization)
  Sender: FDA-Public Use
  Company Number: ZA-BRISTOL-MYERS SQUIBB COMPANY-19897628

PATIENT
  Sex: Female

DRUGS (8)
  1. EFAVIRENZ TABS [Suspect]
     Indication: HIV INFECTION
     Route: 048
  2. SULFAMETHOXAZOLE + TRIMETHOPRIM [Concomitant]
  3. LAMIVUDINE [Concomitant]
  4. TENOFOVIR [Concomitant]
  5. RIFAMPIN [Concomitant]
  6. ISONIAZID [Concomitant]
     Dosage: TAB
  7. PYRAZINAMIDE [Concomitant]
  8. ETHAMBUTOL HCL [Concomitant]

REACTIONS (2)
  - Erythema annulare [Unknown]
  - Photosensitivity reaction [Unknown]
